FAERS Safety Report 6864954-6 (Version None)
Quarter: 2010Q3

REPORT INFORMATION
  Report Type: 
  Country: None (occurrence: None)
  Receive Date: 20100721
  Receipt Date: 20080406
  Transmission Date: 20110219
  Serious: No
  Sender: FDA-Public Use
  Company Number: US-PFIZER INC-2008032059

PATIENT
  Sex: Female
  Weight: 97.5 kg

DRUGS (7)
  1. CHANTIX [Suspect]
     Indication: SMOKING CESSATION THERAPY
     Dates: start: 20080325
  2. PAXIL [Concomitant]
  3. LISINOPRIL [Concomitant]
  4. XANAX [Concomitant]
  5. ATENOLOL [Concomitant]
  6. ACETYLSALICYLIC ACID [Concomitant]
  7. ZOCOR [Concomitant]

REACTIONS (2)
  - ABNORMAL DREAMS [None]
  - SOMNOLENCE [None]
